FAERS Safety Report 13532867 (Version 1)
Quarter: 2017Q2

REPORT INFORMATION
  Report Type: Spontaneous
  Country: GB (occurrence: GB)
  Receive Date: 20170510
  Receipt Date: 20170510
  Transmission Date: 20170830
  Serious: Yes (Hospitalization)
  Sender: FDA-Public Use
  Company Number: GB-ASTRAZENECA-2017SE46870

PATIENT
  Age: 69 Year
  Sex: Female

DRUGS (3)
  1. PIPERACILLIN/TAZOBACTAM [Suspect]
     Active Substance: PIPERACILLIN SODIUM\TAZOBACTAM SODIUM
     Route: 065
  2. MEROPENEM. [Suspect]
     Active Substance: MEROPENEM
     Route: 042
  3. CEFTAZIDIME. [Suspect]
     Active Substance: CEFTAZIDIME
     Route: 065

REACTIONS (1)
  - Drug resistance [Unknown]
